FAERS Safety Report 10944566 (Version 1)
Quarter: 2015Q1

REPORT INFORMATION
  Report Type: Spontaneous
  Country: US (occurrence: None)
  Receive Date: 20150320
  Receipt Date: 20150320
  Transmission Date: 20150721
  Serious: Yes (Hospitalization)
  Sender: FDA-Public Use
  Company Number: None

PATIENT
  Age: 61 Year
  Sex: Female
  Weight: 92.48 kg

DRUGS (2)
  1. CARBOPLATIN. [Suspect]
     Active Substance: CARBOPLATIN
     Dates: end: 20150115
  2. TAXOL [Suspect]
     Active Substance: PACLITAXEL
     Dates: end: 20150115

REACTIONS (2)
  - Hypotension [None]
  - Pneumonitis [None]

NARRATIVE: CASE EVENT DATE: 20150307
